FAERS Safety Report 23506583 (Version 1)
Quarter: 2024Q1

REPORT INFORMATION
  Report Type: Report from Study
  Country: CA (occurrence: CA)
  Receive Date: 20240209
  Receipt Date: 20240209
  Transmission Date: 20240410
  Serious: Yes (Death)
  Sender: FDA-Public Use
  Company Number: CA-BEH-2024168472

PATIENT
  Age: 57 Year
  Sex: Male

DRUGS (1)
  1. HAEMATE P [Suspect]
     Active Substance: ANTIHEMOPHILIC FACTOR HUMAN
     Indication: Von Willebrand^s disease
     Dosage: 4000 INTERNATIONAL UNIT, PRN
     Route: 042
     Dates: start: 20191017

REACTIONS (1)
  - Death [Fatal]

NARRATIVE: CASE EVENT DATE: 20230908
